FAERS Safety Report 5311373-X (Version None)
Quarter: 2007Q2

REPORT INFORMATION
  Report Type: 
  Country: None (occurrence: None)
  Receive Date: 20070430
  Receipt Date: 20070418
  Transmission Date: 20071010
  Serious: Yes (Other)
  Sender: FDA-Public Use
  Company Number: PHEH2007US05880

PATIENT

DRUGS (1)
  1. EXJADE [Suspect]
     Dosage: 30 MG/KG, QD
     Route: 048

REACTIONS (1)
  - HYPERTENSION [None]
